FAERS Safety Report 13703989 (Version 3)
Quarter: 2017Q3

REPORT INFORMATION
  Report Type: Spontaneous
  Country: GB (occurrence: GB)
  Receive Date: 20170629
  Receipt Date: 20170802
  Transmission Date: 20171127
  Serious: Yes (Other)
  Sender: FDA-Public Use
  Company Number: GB-MYLANLABS-2017M1039403

PATIENT

DRUGS (14)
  1. BISACODYL. [Concomitant]
     Active Substance: BISACODYL
     Indication: CONSTIPATION
     Dosage: 10 MG, PM
  2. SPIRIVA [Concomitant]
     Active Substance: TIOTROPIUM BROMIDE MONOHYDRATE
     Indication: CHRONIC OBSTRUCTIVE PULMONARY DISEASE
  3. OMEPRAZOLE. [Concomitant]
     Active Substance: OMEPRAZOLE
     Indication: GASTROINTESTINAL DISORDER
     Dosage: 10 MG, QD
  4. VITAMIN C [Concomitant]
     Active Substance: ASCORBIC ACID
     Indication: IRON DEFICIENCY
     Dosage: 100 MG, QD
  5. CLOZARIL [Suspect]
     Active Substance: CLOZAPINE
     Indication: SCHIZOPHRENIA
     Dosage: UNK
     Route: 048
     Dates: start: 20151027
  6. LACTULOSE. [Concomitant]
     Active Substance: LACTULOSE
     Indication: CONSTIPATION
     Dosage: 20 ML, BID
  7. SPIRIVA [Concomitant]
     Active Substance: TIOTROPIUM BROMIDE MONOHYDRATE
     Indication: ASTHMA
     Dosage: 2 DF, UNK
  8. DIAZEPAM. [Concomitant]
     Active Substance: DIAZEPAM
     Indication: SEIZURE
     Dosage: 10 MG, BID
     Route: 054
  9. DIAZEPAM. [Concomitant]
     Active Substance: DIAZEPAM
     Indication: AGITATION
     Dosage: 5 MG, BID
  10. SALBUTAMOL [Concomitant]
     Active Substance: ALBUTEROL
     Indication: CHRONIC OBSTRUCTIVE PULMONARY DISEASE
     Dosage: UNK UNK, QD
  11. LAXIDO [Concomitant]
     Active Substance: POLYETHYLENE GLYCOL 3350\POTASSIUM CHLORIDE\SODIUM BICARBONATE\SODIUM CHLORIDE
     Indication: CONSTIPATION
     Dosage: 1 DF, TID
  12. CLOZAPINE. [Concomitant]
     Active Substance: CLOZAPINE
     Indication: PRODUCT USED FOR UNKNOWN INDICATION
     Dosage: 300 MG, PM
  13. SENNA [Concomitant]
     Active Substance: SENNA LEAF\SENNOSIDES\SENNOSIDES A AND B
     Indication: CONSTIPATION
     Dosage: 15 MG, QD
  14. SERETIDE [Concomitant]
     Active Substance: FLUTICASONE PROPIONATE\SALMETEROL XINAFOATE
     Indication: CHRONIC OBSTRUCTIVE PULMONARY DISEASE
     Dosage: UNK, TID

REACTIONS (4)
  - Gastrointestinal carcinoma [Not Recovered/Not Resolved]
  - Terminal state [Unknown]
  - Metastases to lung [Not Recovered/Not Resolved]
  - Contraindication to medical treatment [Unknown]
